FAERS Safety Report 6197579-9 (Version None)
Quarter: 2009Q2

REPORT INFORMATION
  Report Type: 
  Country: None (occurrence: None)
  Receive Date: 20090521
  Receipt Date: 20090513
  Transmission Date: 20091009
  Serious: Yes (Hospitalization)
  Sender: FDA-Public Use
  Company Number: US-BIOGENIDEC-2009BI014475

PATIENT
  Age: 46 Year
  Sex: Female
  Weight: 113 kg

DRUGS (4)
  1. AVONEX [Suspect]
     Indication: MULTIPLE SCLEROSIS
     Route: 030
     Dates: start: 20060101
  2. GLUCOPHAGE [Concomitant]
     Indication: DIABETES MELLITUS
     Route: 048
  3. GLIPIZIDE [Concomitant]
     Indication: DIABETES MELLITUS
     Route: 048
  4. TOPAMAX [Concomitant]
     Indication: DRUG USE FOR UNKNOWN INDICATION
     Route: 048
     Dates: start: 20080101

REACTIONS (7)
  - APHASIA [None]
  - BODY TEMPERATURE INCREASED [None]
  - DEPRESSION [None]
  - HYPOHIDROSIS [None]
  - PERSONALITY CHANGE [None]
  - SPEECH DISORDER [None]
  - VOMITING [None]
